FAERS Safety Report 21593774 (Version 1)
Quarter: 2022Q4

REPORT INFORMATION
  Report Type: Spontaneous
  Country: US (occurrence: None)
  Receive Date: 20221114
  Receipt Date: 20221114
  Transmission Date: 20230112
  Serious: Yes (Hospitalization)
  Sender: FDA-Public Use
  Company Number: None

PATIENT
  Age: 75 Year
  Sex: Female
  Weight: 156.4 kg

DRUGS (13)
  1. IBRANCE [Suspect]
     Active Substance: PALBOCICLIB
     Indication: Breast cancer female
     Dosage: OTHER FREQUENCY : 3WON1WOFF;?
     Route: 048
     Dates: start: 202210
  2. ATIVAN [Concomitant]
  3. CYCLOBENZAPRINE [Concomitant]
  4. ESCITALOPRAM [Concomitant]
     Active Substance: ESCITALOPRAM OXALATE
  5. FEMARA [Concomitant]
  6. FERROUS SULFATE [Concomitant]
  7. HYDROCODONE-ACETAMINOPHEN [Concomitant]
  8. KETOROLAC [Concomitant]
  9. LASIX [Concomitant]
     Active Substance: FUROSEMIDE
  10. THYROID [Concomitant]
  11. POTASSIUM CHLORIDE ER [Concomitant]
  12. TRELEGY [Concomitant]
  13. VERAPAMIL [Concomitant]

REACTIONS (2)
  - Rib fracture [None]
  - Therapy interrupted [None]

NARRATIVE: CASE EVENT DATE: 20221113
